FAERS Safety Report 4900002-2 (Version None)
Quarter: 2006Q1

REPORT INFORMATION
  Report Type: 
  Country: None (occurrence: None)
  Receive Date: 20060203
  Receipt Date: 20060118
  Transmission Date: 20060701
  Serious: Yes (Hospitalization, Other)
  Sender: FDA-Public Use
  Company Number: PHBS2006JP01070

PATIENT
  Age: 32 Year
  Sex: Male

DRUGS (7)
  1. PREDNISOLONE [Suspect]
     Indication: NEPHROTIC SYNDROME
     Dosage: 15-60 MG/D
     Route: 065
     Dates: start: 19990601
  2. CYCLOSPORINE [Suspect]
     Indication: NEPHROTIC SYNDROME
     Dosage: 125 MG/D
     Route: 065
  3. CYCLOSPORINE [Suspect]
     Dosage: 200 MG/D
     Route: 065
  4. CYCLOSPORINE [Suspect]
     Dosage: 225 MG/D
     Route: 065
  5. CYCLOSPORINE [Suspect]
     Dosage: 150 MG/D
     Route: 065
  6. METHYLPREDNISOLONE [Suspect]
     Dosage: 10 MG/D
  7. METHYLPREDNISOLONE [Suspect]
     Dosage: 500 MG/D PULSE

REACTIONS (22)
  - ABDOMINAL WALL ABSCESS [None]
  - BLOOD CREATININE INCREASED [None]
  - BLOOD UREA INCREASED [None]
  - CATARACT [None]
  - CELLULITIS [None]
  - CHOLESTASIS [None]
  - CREATININE RENAL CLEARANCE DECREASED [None]
  - DIABETES MELLITUS [None]
  - DISEASE RECURRENCE [None]
  - DRUG ERUPTION [None]
  - GENERALISED OEDEMA [None]
  - HEPATIC FUNCTION ABNORMAL [None]
  - HYPERLIPIDAEMIA [None]
  - INFLAMMATION [None]
  - NASOPHARYNGITIS [None]
  - NEPHROPATHY [None]
  - NEPHROTIC SYNDROME [None]
  - OLIGURIA [None]
  - ORAL CANDIDIASIS [None]
  - OSTEOPOROSIS [None]
  - PANCREATIC ABSCESS [None]
  - RENAL FAILURE [None]
